FAERS Safety Report 11442724 (Version 1)
Quarter: 2015Q3

REPORT INFORMATION
  Report Type: Report from Study
  Country: BR (occurrence: BR)
  Receive Date: 20150901
  Receipt Date: 20150901
  Transmission Date: 20151125
  Serious: Yes (Hospitalization, Other)
  Sender: FDA-Public Use
  Company Number: PHHY2015BR102659

PATIENT
  Sex: Female
  Weight: 66 kg

DRUGS (2)
  1. CONCORZ [Suspect]
     Active Substance: SERTRALINE HYDROCHLORIDE
     Indication: BLOOD PRESSURE ABNORMAL
     Dosage: 1 DF, QD (IN THE MORNING)
     Route: 065
  2. RASILEZ HCT [Suspect]
     Active Substance: ALISKIREN\HYDROCHLOROTHIAZIDE
     Indication: BLOOD PRESSURE ABNORMAL
     Dosage: 1 DF, QD (IN THE MORNING)
     Route: 065
     Dates: end: 20140713

REACTIONS (7)
  - Blood potassium decreased [Unknown]
  - Blood magnesium decreased [Unknown]
  - Blood cholesterol abnormal [Unknown]
  - Varicose vein [Unknown]
  - Seizure [Unknown]
  - Drug ineffective [Unknown]
  - Diabetes mellitus [Unknown]
